FAERS Safety Report 21754636 (Version 1)
Quarter: 2022Q4

REPORT INFORMATION
  Report Type: Spontaneous
  Country: US (occurrence: US)
  Receive Date: 20221220
  Receipt Date: 20221220
  Transmission Date: 20230113
  Serious: No
  Sender: FDA-Public Use
  Company Number: US-PFIZER INC-202201375217

PATIENT
  Age: 89 Year
  Sex: Female
  Weight: 47.63 kg

DRUGS (7)
  1. PAXLOVID [Suspect]
     Active Substance: NIRMATRELVIR\RITONAVIR
     Indication: COVID-19 treatment
     Dosage: [PF-07321332 300 MG]/[RITONAVIR 100 MG]; 2X/DAY
     Dates: start: 20221212
  2. MELOXICAM [Suspect]
     Active Substance: MELOXICAM
     Indication: Arthralgia
     Dosage: 7.5 MG, 1X/DAY
     Dates: start: 202211
  3. MELOXICAM [Suspect]
     Active Substance: MELOXICAM
     Indication: Spinal pain
  4. MELOXICAM [Suspect]
     Active Substance: MELOXICAM
     Indication: Back pain
  5. MELOXICAM [Suspect]
     Active Substance: MELOXICAM
     Indication: Arthralgia
  6. ATORVASTATIN [Concomitant]
     Active Substance: ATORVASTATIN
     Dosage: UNK
  7. ZOLPIDEM [Concomitant]
     Active Substance: ZOLPIDEM TARTRATE
     Indication: Sleep disorder
     Dosage: 6.25 MG, 1X/DAY (AT NIGHT)
     Dates: start: 2020

REACTIONS (3)
  - Oropharyngeal pain [Unknown]
  - Dry mouth [Unknown]
  - Dysgeusia [Unknown]

NARRATIVE: CASE EVENT DATE: 20221201
